FAERS Safety Report 21713720 (Version 1)
Quarter: 2022Q4

REPORT INFORMATION
  Report Type: Spontaneous
  Country: US (occurrence: None)
  Receive Date: 20221208
  Receipt Date: 20221208
  Transmission Date: 20230112
  Serious: Yes (Hospitalization)
  Sender: FDA-Public Use
  Company Number: None

PATIENT
  Age: 66 Year
  Sex: Male
  Weight: 90.72 kg

DRUGS (2)
  1. APIXABAN [Suspect]
     Active Substance: APIXABAN
     Indication: Atrial fibrillation
     Dosage: 5 MG BID PO?
     Route: 048
     Dates: start: 20220819, end: 20220831
  2. ASPIRIN [Suspect]
     Active Substance: ASPIRIN
     Indication: Coronary angioplasty
     Dosage: 81 MG EVERY DAY PO?
     Route: 048
     Dates: start: 20160105, end: 20220831

REACTIONS (14)
  - Abdominal pain [None]
  - Fatigue [None]
  - Dizziness [None]
  - Road traffic accident [None]
  - Musculoskeletal stiffness [None]
  - Arthralgia [None]
  - Fall [None]
  - Head injury [None]
  - Refusal of treatment by patient [None]
  - Haemoglobin decreased [None]
  - Cerebral haematoma [None]
  - Periorbital haematoma [None]
  - Renal disorder [None]
  - Unevaluable event [None]

NARRATIVE: CASE EVENT DATE: 20220831
